FAERS Safety Report 17336306 (Version 1)
Quarter: 2020Q1

REPORT INFORMATION
  Report Type: Spontaneous
  Country: ES (occurrence: ES)
  Receive Date: 20200128
  Receipt Date: 20200128
  Transmission Date: 20200409
  Serious: Yes (Other)
  Sender: FDA-Public Use
  Company Number: ES-JNJFOC-20200128307

PATIENT
  Age: 28 Year
  Sex: Male

DRUGS (2)
  1. SYMTUZA [Suspect]
     Active Substance: COBICISTAT\DARUNAVIR\EMTRICITABINE\TENOFOVIR ALAFENAMIDE
     Indication: HIV TEST POSITIVE
     Dosage: 800 MG/150 MG/200 MG/10 MG
     Route: 048
     Dates: start: 20191105, end: 20191115
  2. BUDESONIDE W/FORMOTEROL FUMARATE [Concomitant]
     Active Substance: BUDESONIDE\FORMOTEROL FUMARATE
     Dosage: 160 MICROGRAMS/4.5 MICROGRAMS
     Dates: start: 20191007

REACTIONS (2)
  - Pruritus [Recovered/Resolved]
  - Dermatitis allergic [Recovered/Resolved]

NARRATIVE: CASE EVENT DATE: 20191115
